FAERS Safety Report 16148148 (Version 2)
Quarter: 2019Q2

REPORT INFORMATION
  Report Type: Spontaneous
  Country: US (occurrence: US)
  Receive Date: 20190402
  Receipt Date: 20190617
  Transmission Date: 20190711
  Serious: No
  Sender: FDA-Public Use
  Company Number: US-PFIZER INC-2019134100

PATIENT
  Age: 74 Year
  Sex: Female

DRUGS (13)
  1. VENLAFAXINE HCL [Suspect]
     Active Substance: VENLAFAXINE HYDROCHLORIDE
     Dosage: UNK
  2. DILAUDID [Suspect]
     Active Substance: HYDROMORPHONE HYDROCHLORIDE
     Dosage: UNK
  3. MORPHINE SULFATE. [Suspect]
     Active Substance: MORPHINE SULFATE
     Dosage: UNK
  4. SULFASALAZINE. [Suspect]
     Active Substance: SULFASALAZINE
     Dosage: UNK
  5. PENICILLIN V [Suspect]
     Active Substance: PENICILLIN V
     Dosage: UNK
  6. INDOCIN [Suspect]
     Active Substance: INDOMETHACIN
     Dosage: UNK
  7. HYDROMORPHONE HYDROCHLORIDE. [Suspect]
     Active Substance: HYDROMORPHONE HYDROCHLORIDE
     Dosage: UNK
  8. BUTAZOLIDIN [CINCHOCAINE HYDROCHLORIDE;PHENYLBUTAZONE SODIUM] [Suspect]
     Active Substance: DIBUCAINE\PHENYLBUTAZONE
     Dosage: UNK
  9. INDOMETHACIN SODIUM [Suspect]
     Active Substance: INDOMETHACIN SODIUM
     Dosage: UNK
  10. OXYCODONE [Suspect]
     Active Substance: OXYCODONE
     Dosage: UNK
  11. PHENYLBUTAZONE [Suspect]
     Active Substance: PHENYLBUTAZONE
     Dosage: UNK
  12. SULFAMETHOXAZOLE [Suspect]
     Active Substance: SULFAMETHOXAZOLE
     Dosage: UNK
  13. ASPIRIN. [Suspect]
     Active Substance: ASPIRIN
     Dosage: UNK

REACTIONS (1)
  - Drug hypersensitivity [Unknown]

NARRATIVE: CASE EVENT DATE: 20190321
